FAERS Safety Report 15343856 (Version 1)
Quarter: 2018Q3

REPORT INFORMATION
  Report Type: Spontaneous
  Country: DE (occurrence: DE)
  Receive Date: 20180903
  Receipt Date: 20180903
  Transmission Date: 20181010
  Serious: Yes (Death, Hospitalization, Other)
  Sender: FDA-Public Use
  Company Number: PHHY2018DE087518

PATIENT
  Age: 75 Year
  Sex: Female

DRUGS (8)
  1. ELIQUIS [Interacting]
     Active Substance: APIXABAN
     Dosage: 2.5 MG, QD (5 MG EVERY DAY)
     Route: 048
     Dates: start: 20161112
  2. TORASEMID [Concomitant]
     Active Substance: TORSEMIDE
     Indication: PRODUCT USED FOR UNKNOWN INDICATION
     Dosage: 1 DF, UNK (1 DF=10 MG 1X)
     Route: 065
  3. SIMVASTATIN. [Concomitant]
     Active Substance: SIMVASTATIN
     Indication: PRODUCT USED FOR UNKNOWN INDICATION
     Dosage: 1 DF, UNK (1 DF=40 1X)
     Route: 065
  4. ACETYLSALICYLIC ACID [Suspect]
     Active Substance: ASPIRIN
     Indication: CORONARY ARTERY DISEASE
     Dosage: 100 MG, UNK
     Route: 048
     Dates: start: 20160525, end: 20161108
  5. BISOPROLOL [Concomitant]
     Active Substance: BISOPROLOL
     Indication: PRODUCT USED FOR UNKNOWN INDICATION
     Dosage: 1 DF, UNK (1 DF=2.5 1X)
     Route: 065
  6. VALSARTAN. [Concomitant]
     Active Substance: VALSARTAN
     Indication: PRODUCT USED FOR UNKNOWN INDICATION
     Dosage: 1 DF, UNK (1 DF=80 1X)
     Route: 065
  7. ALLOPURINOL. [Concomitant]
     Active Substance: ALLOPURINOL
     Indication: PRODUCT USED FOR UNKNOWN INDICATION
     Dosage: 1 DF, UNK (1 DF=100 1X)
     Route: 065
  8. ELIQUIS [Interacting]
     Active Substance: APIXABAN
     Indication: CEREBROVASCULAR ACCIDENT PROPHYLAXIS
     Dosage: 5 MG, QD (10 MG EVERY DAY)
     Route: 048
     Dates: start: 201605, end: 20161108

REACTIONS (5)
  - Labelled drug-drug interaction medication error [Unknown]
  - Off label use [Unknown]
  - Compartment syndrome [Fatal]
  - Prescribed underdose [Unknown]
  - Haematoma [Fatal]

NARRATIVE: CASE EVENT DATE: 20161107
